FAERS Safety Report 13402762 (Version 1)
Quarter: 2017Q2

REPORT INFORMATION
  Report Type: Spontaneous
  Country: US (occurrence: US)
  Receive Date: 20170404
  Receipt Date: 20170404
  Transmission Date: 20170830
  Serious: No
  Sender: FDA-Public Use
  Company Number: US-ROCHE-1749051

PATIENT
  Age: 71 Year
  Sex: Female

DRUGS (24)
  1. BUSPIRONE [Concomitant]
     Active Substance: BUSPIRONE HYDROCHLORIDE
     Dosage: 1 TAB TWICE DAILY
     Route: 048
     Dates: start: 20160314
  2. CALCIUM 600 + D [Concomitant]
     Active Substance: CALCIUM\VITAMIN D
     Dosage: 1 TAB ONCE DAILY
     Route: 048
     Dates: start: 20160314
  3. TOPIRAMATE. [Concomitant]
     Active Substance: TOPIRAMATE
     Dosage: 1 TAB TWICE DAILY
     Route: 048
     Dates: start: 20160314
  4. PRILOSEC [Concomitant]
     Active Substance: OMEPRAZOLE MAGNESIUM
     Dosage: 1 TAB ONCE DAILY
     Route: 048
     Dates: start: 20160314
  5. ARIMIDEX [Concomitant]
     Active Substance: ANASTROZOLE
     Route: 065
     Dates: start: 200310
  6. ABRAXANE [Concomitant]
     Active Substance: PACLITAXEL
     Route: 065
     Dates: start: 200705
  7. NAVELBINE [Concomitant]
     Active Substance: VINORELBINE TARTRATE
     Route: 065
     Dates: start: 200907
  8. CLONIDINE. [Concomitant]
     Active Substance: CLONIDINE
     Dosage: 1 PATCH ONCE A WEEK
     Route: 062
     Dates: start: 20160314
  9. FEMARA [Concomitant]
     Active Substance: LETROZOLE
     Dosage: 1 TAB ONCE DAILY
     Route: 048
     Dates: start: 20160314
  10. IBRANCE [Suspect]
     Active Substance: PALBOCICLIB
     Indication: BREAST CANCER
     Dosage: FOR 21 DAYS?LAST CYCLE WAS ON 04/FEB/2016
     Route: 048
     Dates: start: 201511
  11. ZOMETA [Concomitant]
     Active Substance: ZOLEDRONIC ACID
     Route: 065
     Dates: start: 200908
  12. LETROZOLE. [Concomitant]
     Active Substance: LETROZOLE
     Dosage: 1 TAB ONCE DAILY
     Route: 048
     Dates: start: 20160314
  13. FERROUS SULFATE. [Concomitant]
     Active Substance: FERROUS SULFATE
     Dosage: 1 TAB ONCE DAILY
     Route: 048
     Dates: start: 20160314
  14. SENNA [Concomitant]
     Active Substance: SENNA LEAF\SENNOSIDES\SENNOSIDES A AND B
     Dosage: 1 TAB ONCE DAILY
     Route: 048
     Dates: start: 20160314
  15. MOBIC [Concomitant]
     Active Substance: MELOXICAM
     Dosage: 1 TAB ONCE DAILY
     Route: 048
     Dates: start: 20160314
  16. MAG OXIDE [Concomitant]
     Active Substance: MAGNESIUM OXIDE
     Dosage: 1 TAB ONCE DAILY
     Route: 048
     Dates: start: 20160314
  17. CITALOPRAM [Concomitant]
     Active Substance: CITALOPRAM HYDROBROMIDE
     Dosage: 1 TAB ONCE DAILY
     Route: 048
     Dates: start: 20160314
  18. VITAMIN D3 [Concomitant]
     Active Substance: CHOLECALCIFEROL
     Dosage: 1 CAPSULE ONCE DAILY
     Route: 048
     Dates: start: 20160314
  19. GABAPENTIN. [Concomitant]
     Active Substance: GABAPENTIN
     Dosage: 1 CAPSULE THRICE DAILY
     Route: 048
     Dates: start: 20160314
  20. KADCYLA [Suspect]
     Active Substance: ADO-TRASTUZUMAB EMTANSINE
     Indication: PRODUCT USED FOR UNKNOWN INDICATION
     Route: 065
     Dates: start: 201305
  21. FASLODEX [Concomitant]
     Active Substance: FULVESTRANT
  22. IMIPRAMINE [Concomitant]
     Active Substance: IMIPRAMINE
     Dosage: 1 TAB ONCE DAILY
     Route: 048
     Dates: start: 20160314
  23. METOPROLOL TARTRATE. [Concomitant]
     Active Substance: METOPROLOL TARTRATE
     Dosage: 0.5 TAB ONCE DAILY
     Route: 048
     Dates: start: 20160314
  24. DOCUSATE SODIUM. [Concomitant]
     Active Substance: DOCUSATE SODIUM
     Dosage: 1 TAB TWICE DAILY
     Route: 048
     Dates: start: 20160314

REACTIONS (3)
  - Hypersomnia [Unknown]
  - Hypoaesthesia [Unknown]
  - Fatigue [Recovering/Resolving]

NARRATIVE: CASE EVENT DATE: 201601
